FAERS Safety Report 8114031-1 (Version None)
Quarter: 2012Q1

REPORT INFORMATION
  Report Type: 
  Country: None (occurrence: None)
  Receive Date: 20120203
  Receipt Date: 20120125
  Transmission Date: 20120608
  Serious: Yes (Hospitalization)
  Sender: FDA-Public Use
  Company Number: JP-ASTRAZENECA-2012SE05999

PATIENT
  Age: 76 Year
  Sex: Male

DRUGS (2)
  1. OMEPRAZOLE [Suspect]
     Dosage: DOSE UNKNOWN
     Route: 048
     Dates: start: 20100501
  2. OMEPRAZOLE [Suspect]
     Indication: GASTROOESOPHAGEAL REFLUX DISEASE
     Dosage: DOSE UNKNOWN
     Route: 048
     Dates: start: 20090101, end: 20100301

REACTIONS (1)
  - INAPPROPRIATE ANTIDIURETIC HORMONE SECRETION [None]
